FAERS Safety Report 20673470 (Version 1)
Quarter: 2022Q2

REPORT INFORMATION
  Report Type: Spontaneous
  Country: US (occurrence: US)
  Receive Date: 20220405
  Receipt Date: 20220405
  Transmission Date: 20220720
  Serious: No
  Sender: FDA-Public Use
  Company Number: US-SUNOVION-2022SUN001054

PATIENT
  Sex: Male

DRUGS (1)
  1. LATUDA [Suspect]
     Active Substance: LURASIDONE HYDROCHLORIDE
     Indication: Bipolar disorder
     Dosage: 25 MG, QD (ONE LATUDA 20MG TAB AND 1/4/TAB OF A LATUDA 20MG)
     Route: 048

REACTIONS (4)
  - Decreased activity [Unknown]
  - Frustration tolerance decreased [Unknown]
  - Thinking abnormal [Unknown]
  - Wrong technique in product usage process [Unknown]
